FAERS Safety Report 23488784 (Version 2)
Quarter: 2024Q1

REPORT INFORMATION
  Report Type: Report from Study
  Country: US (occurrence: US)
  Receive Date: 20240206
  Receipt Date: 20240207
  Transmission Date: 20240410
  Serious: Yes (Other)
  Sender: FDA-Public Use
  Company Number: US-BRISTOL-MYERS SQUIBB COMPANY-2024-018159

PATIENT
  Age: 79 Year
  Sex: Male
  Weight: 81.65 kg

DRUGS (7)
  1. OPDIVO [Suspect]
     Active Substance: NIVOLUMAB
     Indication: Malignant melanoma
     Dosage: ONE DOSE EVERY 3 WEEKS , FOR 4 DOSES THEN WAS SWITCHED TO EVERY 2 WEEKS FOR 4 MORE DOSES
     Route: 042
     Dates: start: 202303
  2. OPDIVO [Suspect]
     Active Substance: NIVOLUMAB
     Dosage: ONE DOSE EVERY 3 WEEKS , FOR 4 DOSES THEN WAS SWITCHED TO EVERY 2 WEEKS FOR 4 MORE DOSES
     Route: 042
     Dates: start: 202303
  3. OPDIVO [Suspect]
     Active Substance: NIVOLUMAB
     Dosage: OPDIVO ALONE FOR FOUR DOSES (EVERY TWO WEEKS )
     Route: 042
  4. YERVOY [Suspect]
     Active Substance: IPILIMUMAB
     Indication: Malignant melanoma
     Route: 042
     Dates: start: 202303
  5. INFLUENZA VIRUS VACCINE [Suspect]
     Active Substance: INFLUENZA VIRUS VACCINE
     Indication: Influenza
  6. SULFAMETHOXAZOLE\TRIMETHOPRIM [Concomitant]
     Active Substance: SULFAMETHOXAZOLE\TRIMETHOPRIM
     Indication: Product used for unknown indication
     Dosage: SULSAMETH/TRIMETHOPRIM 800/160 MG ONE TABLET EVERY 12HRS
  7. RAMIPRIL [Concomitant]
     Active Substance: RAMIPRIL
     Indication: Blood pressure measurement

REACTIONS (9)
  - Fatigue [Unknown]
  - Urinary tract infection [Recovered/Resolved]
  - Influenza [Unknown]
  - Lung neoplasm malignant [Unknown]
  - Haemorrhage [Unknown]
  - Visual impairment [Unknown]
  - Vitreous floaters [Unknown]
  - Off label use [Unknown]
  - Spinal cord neoplasm [Unknown]
